FAERS Safety Report 12574246 (Version 1)
Quarter: 2016Q3

REPORT INFORMATION
  Report Type: Spontaneous
  Country: DE (occurrence: DE)
  Receive Date: 20160720
  Receipt Date: 20160720
  Transmission Date: 20161109
  Serious: Yes (Other)
  Sender: FDA-Public Use
  Company Number: DE-TEVA-676027GER

PATIENT
  Age: 72 Year
  Sex: Female
  Weight: 61 kg

DRUGS (4)
  1. SIMVASTATIN. [Suspect]
     Active Substance: SIMVASTATIN
     Indication: HYPERLIPIDAEMIA
     Dosage: 80 MILLIGRAM DAILY;
     Route: 048
  2. RANEXA [Concomitant]
     Active Substance: RANOLAZINE
     Indication: ARRHYTHMIA
     Dosage: 750 DOSAGE FORMS DAILY;
     Route: 048
  3. VALSACOR 320/25 MG [Concomitant]
     Indication: HYPERTENSION
     Dosage: 1 DOSAGE FORMS DAILY;
     Route: 048
  4. ADENURIC [Suspect]
     Active Substance: FEBUXOSTAT
     Indication: HYPERURICAEMIA
     Dosage: 80 MILLIGRAM DAILY;

REACTIONS (3)
  - Myopathy [Unknown]
  - Hypoaesthesia [Unknown]
  - Renal failure [Unknown]

NARRATIVE: CASE EVENT DATE: 20160621
